FAERS Safety Report 8909233 (Version 1)
Quarter: 2012Q4

REPORT INFORMATION
  Report Type: Spontaneous
  Country: DK (occurrence: None)
  Receive Date: 20121107
  Receipt Date: 20121107
  Transmission Date: 20130627
  Serious: Yes (Hospitalization)
  Sender: FDA-Public Use
  Company Number: 2012MA012868

PATIENT
  Age: 43 Year
  Sex: Male

DRUGS (4)
  1. MIRTAZAPINE TABLETS [Suspect]
     Indication: DEPRESSION
     Route: 048
     Dates: start: 20121019, end: 20121019
  2. RIVOTRIL [Concomitant]
  3. EUTIMIL [Concomitant]
  4. DALMADORM [Concomitant]

REACTIONS (7)
  - Sopor [None]
  - Tachycardia [None]
  - Intentional self-injury [None]
  - Drug abuse [None]
  - Intentional overdose [None]
  - Suicide attempt [None]
  - Heart rate increased [None]
